FAERS Safety Report 25891631 (Version 2)
Quarter: 2025Q4

REPORT INFORMATION
  Report Type: Report from Study
  Country: US (occurrence: US)
  Receive Date: 20251007
  Receipt Date: 20251010
  Transmission Date: 20260117
  Serious: Yes (Other)
  Sender: ALEXION PHARMACEUTICALS
  Company Number: 202510NAM003455US

PATIENT
  Age: 28 Year
  Sex: Female

DRUGS (1)
  1. STRENSIQ [Suspect]
     Active Substance: ASFOTASE ALFA
     Indication: Phosphorus metabolism disorder
     Dosage: 80 MILLIGRAM, SIX TIMES/WEEK
     Route: 065

REACTIONS (4)
  - Lipodystrophy acquired [Unknown]
  - Partial seizures [Unknown]
  - Injection site pain [Unknown]
  - Memory impairment [Unknown]
